FAERS Safety Report 7671429-3 (Version None)
Quarter: 2011Q3

REPORT INFORMATION
  Report Type: 
  Country: None (occurrence: None)
  Receive Date: 20110809
  Receipt Date: 20110803
  Transmission Date: 20111222
  Serious: Yes (Death)
  Sender: FDA-Public Use
  Company Number: US-AMGEN-QUU432182

PATIENT
  Sex: Male
  Weight: 95.238 kg

DRUGS (3)
  1. DECITABINE [Concomitant]
  2. GEMTUZUMAB [Concomitant]
  3. NPLATE [Suspect]
     Indication: IDIOPATHIC THROMBOCYTOPENIC PURPURA
     Dosage: 750 A?G, QWK
     Route: 058
     Dates: start: 20090814, end: 20100315

REACTIONS (2)
  - HAEMOPTYSIS [None]
  - ACUTE MYELOID LEUKAEMIA [None]
